FAERS Safety Report 12224393 (Version 1)
Quarter: 2016Q1

REPORT INFORMATION
  Report Type: Spontaneous
  Country: US (occurrence: US)
  Receive Date: 20160331
  Receipt Date: 20160331
  Transmission Date: 20160526
  Serious: No
  Sender: FDA-Public Use
  Company Number: US-009507513-1603USA012016

PATIENT
  Age: 71 Year
  Sex: Female

DRUGS (4)
  1. BELSOMRA [Suspect]
     Active Substance: SUVOREXANT
     Indication: INSOMNIA
     Dosage: 20 MG/ DAILY
     Route: 048
     Dates: start: 201602, end: 201602
  2. RELPAX [Concomitant]
     Active Substance: ELETRIPTAN HYDROBROMIDE
  3. XANAX [Concomitant]
     Active Substance: ALPRAZOLAM
  4. AMITRIPTYLINE HYDROCHLORIDE. [Concomitant]
     Active Substance: AMITRIPTYLINE HYDROCHLORIDE

REACTIONS (6)
  - Vomiting [Recovered/Resolved]
  - Migraine [Recovered/Resolved]
  - Hallucination [Recovered/Resolved]
  - Sleep paralysis [Recovered/Resolved]
  - Poor quality sleep [Recovered/Resolved]
  - Tremor [Recovered/Resolved]

NARRATIVE: CASE EVENT DATE: 201602
